FAERS Safety Report 6138461-2 (Version None)
Quarter: 2009Q1

REPORT INFORMATION
  Report Type: 
  Country: None (occurrence: None)
  Receive Date: 20090331
  Receipt Date: 20090327
  Transmission Date: 20090719
  Serious: Yes (Hospitalization, Other)
  Sender: FDA-Public Use
  Company Number: FR-BRISTOL-MYERS SQUIBB COMPANY-14564116

PATIENT
  Age: 32 Year
  Sex: Male

DRUGS (2)
  1. ABILIFY [Suspect]
     Indication: HALLUCINATION
     Dosage: DOSE REDUCED TO 10MG/D FROM AUG08
     Route: 048
     Dates: start: 20080201
  2. HALDOL [Suspect]
     Indication: HALLUCINATION
     Dosage: TAKEN FOR SEVERAL YEARS

REACTIONS (2)
  - DELUSION [None]
  - WEIGHT DECREASED [None]
